FAERS Safety Report 12529927 (Version 1)
Quarter: 2016Q3

REPORT INFORMATION
  Report Type: Spontaneous
  Country: US (occurrence: None)
  Receive Date: 20160705
  Receipt Date: 20160705
  Transmission Date: 20161109
  Serious: Yes (Hospitalization)
  Sender: FDA-Public Use
  Company Number: None

PATIENT
  Age: 49 Year
  Sex: Female
  Weight: 87.54 kg

DRUGS (8)
  1. VITAMIN D [Concomitant]
     Active Substance: CHOLECALCIFEROL
  2. CALCIUM CITRATE [Concomitant]
     Active Substance: CALCIUM CITRATE
  3. HYOSCYAMINE. [Suspect]
     Active Substance: HYOSCYAMINE
     Indication: GASTRIC BYPASS
     Route: 060
     Dates: start: 20160528, end: 20160625
  4. COMPLETE VITAMIN [Concomitant]
  5. HYOSCYAMINE. [Suspect]
     Active Substance: HYOSCYAMINE
     Indication: ABDOMINAL PAIN UPPER
     Route: 060
     Dates: start: 20160528, end: 20160625
  6. HYDROCODONE [Concomitant]
     Active Substance: HYDROCODONE
  7. TIZANIDINE. [Concomitant]
     Active Substance: TIZANIDINE
  8. VITAMIN B [Concomitant]
     Active Substance: VITAMIN B

REACTIONS (17)
  - Balance disorder [None]
  - Asthenia [None]
  - Dry mouth [None]
  - Confusional state [None]
  - Dysarthria [None]
  - Pollakiuria [None]
  - Discomfort [None]
  - Product solubility abnormal [None]
  - Dysgeusia [None]
  - Amnesia [None]
  - Coordination abnormal [None]
  - Dizziness [None]
  - Abasia [None]
  - Vision blurred [None]
  - Depressed level of consciousness [None]
  - Disturbance in attention [None]
  - Disorientation [None]

NARRATIVE: CASE EVENT DATE: 20160625
